FAERS Safety Report 6996167-1 (Version None)
Quarter: 2010Q3

REPORT INFORMATION
  Report Type: 
  Country: None (occurrence: None)
  Receive Date: 20100918
  Receipt Date: 20081231
  Transmission Date: 20110219
  Serious: No
  Sender: FDA-Public Use
  Company Number: US-WYE-H07541309

PATIENT
  Sex: Female

DRUGS (1)
  1. AMIODARONE HCL [Suspect]
     Dosage: UNSPECIFIED
     Dates: start: 20080719, end: 20080819

REACTIONS (2)
  - BURNING SENSATION [None]
  - DYSGEUSIA [None]
